FAERS Safety Report 9226217 (Version 1)
Quarter: 2013Q2

REPORT INFORMATION
  Report Type: Spontaneous
  Country: DE (occurrence: DE)
  Receive Date: 20130411
  Receipt Date: 20130411
  Transmission Date: 20140414
  Serious: Yes (Other)
  Sender: FDA-Public Use
  Company Number: GXKR2013DE001435

PATIENT
  Sex: Male

DRUGS (1)
  1. AZITHROMYCIN HEXAL [Suspect]
     Indication: SINUSITIS
     Dosage: 500 MG, UNK
     Route: 048

REACTIONS (1)
  - Head titubation [Unknown]
